FAERS Safety Report 6731451-8 (Version None)
Quarter: 2010Q2

REPORT INFORMATION
  Report Type: 
  Country: None (occurrence: None)
  Receive Date: 20100519
  Receipt Date: 20100511
  Transmission Date: 20101027
  Serious: Yes (Other)
  Sender: FDA-Public Use
  Company Number: GB-BRISTOL-MYERS SQUIBB COMPANY-15104292

PATIENT
  Age: 67 Year
  Sex: Male
  Weight: 73 kg

DRUGS (5)
  1. ONGLYZA [Suspect]
     Indication: GLYCOSYLATED HAEMOGLOBIN INCREASED
     Route: 048
     Dates: start: 20100422, end: 20100425
  2. ASPIRIN [Concomitant]
  3. FELODIPINE [Concomitant]
  4. METFORMIN HCL [Concomitant]
     Dosage: STRENGTH 500MG
  5. RAMIPRIL [Concomitant]

REACTIONS (2)
  - HEADACHE [None]
  - VISUAL IMPAIRMENT [None]
